FAERS Safety Report 8796375 (Version 1)
Quarter: 2012Q4

REPORT INFORMATION
  Report Type: 
  Country: CO (occurrence: CO)
  Receive Date: 20120919
  Receipt Date: 20120919
  Transmission Date: 20130627
  Serious: Yes (Death)
  Sender: FDA-Public Use
  Company Number: CO-PFIZER INC-2012230765

PATIENT
  Age: 80 Year
  Sex: Male

DRUGS (1)
  1. SUTENT [Suspect]
     Indication: RENAL CANCER
     Dosage: 3 cicles of 37.5 units unknown, 2x/day
     Route: 065
     Dates: start: 20100101

REACTIONS (3)
  - Death [Fatal]
  - Oral discomfort [Unknown]
  - Dysphagia [Unknown]
